FAERS Safety Report 25543997 (Version 1)
Quarter: 2025Q3

REPORT INFORMATION
  Report Type: Spontaneous
  Country: US (occurrence: US)
  Receive Date: 20250711
  Receipt Date: 20250711
  Transmission Date: 20251021
  Serious: No
  Sender: MERCK SHARP & DOHME LLC
  Company Number: US-009507513-2304072

PATIENT
  Age: 75 Year
  Sex: Female

DRUGS (1)
  1. BELZUTIFAN [Suspect]
     Active Substance: BELZUTIFAN
     Indication: Pancreatic cyst
     Dosage: 40 MG DAILY
     Route: 050

REACTIONS (2)
  - Visual impairment [Unknown]
  - Vision blurred [Unknown]
